FAERS Safety Report 7107987-7 (Version None)
Quarter: 2010Q4

REPORT INFORMATION
  Report Type: 
  Country: None (occurrence: None)
  Receive Date: 20101105
  Receipt Date: 20101101
  Transmission Date: 20110411
  Serious: Yes (Other)
  Sender: FDA-Public Use
  Company Number: A0882621A

PATIENT
  Age: 32 Year
  Sex: Female

DRUGS (1)
  1. UREA PEROXIDE [Suspect]

REACTIONS (8)
  - ADVERSE EVENT [None]
  - EAR PAIN [None]
  - HEADACHE [None]
  - HYPOACUSIS [None]
  - MALAISE [None]
  - OROPHARYNGEAL PAIN [None]
  - PRURITUS [None]
  - SINUSITIS [None]
